FAERS Safety Report 8857569 (Version 1)
Quarter: 2012Q4

REPORT INFORMATION
  Report Type: 
  Country: US (occurrence: US)
  Receive Date: 20121024
  Receipt Date: 20121024
  Transmission Date: 20130627
  Serious: No
  Sender: FDA-Public Use
  Company Number: US-PFIZER INC-2012266020

PATIENT
  Age: 62 Year
  Sex: Female
  Weight: 56.69 kg

DRUGS (1)
  1. PRISTIQ [Suspect]
     Indication: ANXIETY
     Dosage: 50 mg, 1x/day
     Route: 048
     Dates: start: 201208, end: 20121022

REACTIONS (12)
  - Flatulence [Not Recovered/Not Resolved]
  - Hyperhidrosis [Not Recovered/Not Resolved]
  - Withdrawal syndrome [Unknown]
  - Activities of daily living impaired [Unknown]
  - Dizziness [Unknown]
  - Impaired driving ability [Unknown]
  - Emotional disorder [Unknown]
  - Tinnitus [Unknown]
  - Blood pressure increased [Unknown]
  - Feeling abnormal [Unknown]
  - Joint crepitation [Unknown]
  - Off label use [Unknown]
